FAERS Safety Report 6282984-2 (Version None)
Quarter: 2009Q3

REPORT INFORMATION
  Report Type: 
  Country: None (occurrence: None)
  Receive Date: 20090724
  Receipt Date: 20090710
  Transmission Date: 20100115
  Serious: Yes (Other)
  Sender: FDA-Public Use
  Company Number: PHHY2009DE21033

PATIENT
  Sex: Male
  Weight: 73 kg

DRUGS (2)
  1. RASILEZ [Suspect]
     Indication: HYPERTENSION
     Dosage: 150 MG/DAY
     Route: 048
  2. RASILEZ [Suspect]
     Dosage: UNK

REACTIONS (8)
  - ALOPECIA [None]
  - ALOPECIA AREATA [None]
  - DERMATITIS [None]
  - HAIR COLOUR CHANGES [None]
  - PIGMENTATION DISORDER [None]
  - PRURITUS [None]
  - PRURITUS GENERALISED [None]
  - RHINITIS ALLERGIC [None]
